FAERS Safety Report 17237372 (Version 5)
Quarter: 2023Q2

REPORT INFORMATION
  Report Type: Spontaneous
  Country: US (occurrence: US)
  Receive Date: 20200106
  Receipt Date: 20230421
  Transmission Date: 20230721
  Serious: Yes (Hospitalization, Other)
  Sender: FDA-Public Use
  Company Number: US-PFIZER INC-2020002940

PATIENT
  Age: 65 Year
  Sex: Male
  Weight: 89.796 kg

DRUGS (1)
  1. XELJANZ XR [Suspect]
     Active Substance: TOFACITINIB CITRATE
     Indication: Rheumatoid arthritis
     Dosage: 11 MG, 1X/DAY
     Dates: start: 201912

REACTIONS (5)
  - Hip fracture [Unknown]
  - Pneumonia [Unknown]
  - Hypoacusis [Unknown]
  - Anaemia [Unknown]
  - Abdominal discomfort [Unknown]
